FAERS Safety Report 8999864 (Version 1)
Quarter: 2013Q1

REPORT INFORMATION
  Report Type: Spontaneous
  Country: FR (occurrence: FR)
  Receive Date: 20130102
  Receipt Date: 20130102
  Transmission Date: 20140127
  Serious: Yes (Hospitalization)
  Sender: FDA-Public Use
  Company Number: FR-SANOFI-AVENTIS-2012SA094841

PATIENT
  Age: 68 Year
  Sex: Male

DRUGS (8)
  1. LASILIX [Suspect]
     Indication: PRODUCT USED FOR UNKNOWN INDICATION
     Route: 048
  2. AMIODARONE [Interacting]
     Indication: PRODUCT USED FOR UNKNOWN INDICATION
     Dosage: 200 MG 5 DAYS /W
     Route: 048
     Dates: end: 20121202
  3. NEBIVOLOL [Interacting]
     Indication: PRODUCT USED FOR UNKNOWN INDICATION
     Route: 048
     Dates: end: 20121202
  4. PREVISCAN [Concomitant]
     Route: 048
  5. ROSUVASTATIN CALCIUM [Concomitant]
     Route: 048
  6. AMLODIPINE/VALSARTAN [Concomitant]
     Route: 048
  7. LEVOTHYROX [Concomitant]
     Route: 048
  8. METFORMIN [Concomitant]
     Route: 048

REACTIONS (3)
  - Torsade de pointes [Recovered/Resolved]
  - Electrocardiogram QT prolonged [Recovered/Resolved]
  - Drug interaction [Unknown]
